FAERS Safety Report 5602515-7 (Version None)
Quarter: 2008Q1

REPORT INFORMATION
  Report Type: 
  Country: None (occurrence: None)
  Receive Date: 20080125
  Receipt Date: 20080117
  Transmission Date: 20080703
  Serious: Yes (Other)
  Sender: FDA-Public Use
  Company Number: B0496313A

PATIENT
  Age: 50 Year
  Sex: Male
  Weight: 68 kg

DRUGS (3)
  1. DEROXAT [Suspect]
     Dosage: 20MG TWICE PER DAY
     Route: 048
     Dates: start: 20070501, end: 20071201
  2. RISPERDAL [Suspect]
     Indication: MANIA
     Dosage: 1MG THREE TIMES PER DAY
     Route: 048
     Dates: start: 20070701, end: 20071120
  3. ANTIBIOTIC [Suspect]
     Indication: DRUG USE FOR UNKNOWN INDICATION
     Route: 065

REACTIONS (2)
  - ENURESIS [None]
  - HAEMATOSPERMIA [None]
